FAERS Safety Report 13705081 (Version 1)
Quarter: 2017Q2

REPORT INFORMATION
  Report Type: Spontaneous
  Country: US (occurrence: US)
  Receive Date: 20170629
  Receipt Date: 20170629
  Transmission Date: 20170830
  Serious: No
  Sender: FDA-Public Use
  Company Number: None

PATIENT
  Age: 36 Year
  Sex: Female
  Weight: 72 kg

DRUGS (1)
  1. ZYRTEC-D [Suspect]
     Active Substance: CETIRIZINE HYDROCHLORIDE\PSEUDOEPHEDRINE HYDROCHLORIDE
     Indication: HYPERSENSITIVITY
     Dates: start: 20130630

REACTIONS (4)
  - Erythema [None]
  - Skin haemorrhage [None]
  - Pruritus [None]
  - Scratch [None]

NARRATIVE: CASE EVENT DATE: 20150630
